FAERS Safety Report 16953960 (Version 1)
Quarter: 2019Q4

REPORT INFORMATION
  Report Type: Spontaneous
  Country: US (occurrence: US)
  Receive Date: 20191023
  Receipt Date: 20191023
  Transmission Date: 20200122
  Serious: No
  Sender: FDA-Public Use
  Company Number: US-ABBVIE-19K-163-2933990-00

PATIENT
  Age: 26 Year
  Sex: Female

DRUGS (2)
  1. ORILISSA [Suspect]
     Active Substance: ELAGOLIX SODIUM
     Indication: PELVIC PAIN
  2. ORILISSA [Suspect]
     Active Substance: ELAGOLIX SODIUM
     Indication: ENDOMETRIOSIS
     Route: 048
     Dates: start: 20190807, end: 20190916

REACTIONS (3)
  - Mood swings [Recovered/Resolved]
  - Irritability [Recovered/Resolved]
  - Mental disorder [Recovered/Resolved]

NARRATIVE: CASE EVENT DATE: 2019
